FAERS Safety Report 15945027 (Version 3)
Quarter: 2025Q3

REPORT INFORMATION
  Report Type: Spontaneous
  Country: EU (occurrence: EU)
  Receive Date: 20190211
  Receipt Date: 20250728
  Transmission Date: 20251021
  Serious: Yes (Death, Hospitalization, Other)
  Sender: SANOFI AVENTIS
  Company Number: EU-EMA-DD-20190117-BISHT_P-124147

PATIENT
  Sex: Male

DRUGS (10)
  1. CAMPATH [Suspect]
     Active Substance: ALEMTUZUMAB
     Indication: Prophylaxis against graft versus host disease
     Route: 065
     Dates: start: 201105
  2. FLUDARABINE PHOSPHATE [Suspect]
     Active Substance: FLUDARABINE PHOSPHATE
     Indication: Stem cell transplant
     Route: 042
     Dates: start: 201105
  3. BUSULFAN [Suspect]
     Active Substance: BUSULFAN
     Indication: Stem cell transplant
     Route: 042
     Dates: start: 201105
  4. SOLU-MEDROL [Suspect]
     Active Substance: METHYLPREDNISOLONE SODIUM SUCCINATE
     Indication: Chronic granulomatous disease
     Route: 065
     Dates: start: 201105
  5. VFEND [Concomitant]
     Active Substance: VORICONAZOLE
     Indication: Antifungal prophylaxis
     Route: 048
     Dates: start: 201105
  6. VFEND [Concomitant]
     Active Substance: VORICONAZOLE
     Route: 048
     Dates: start: 201105
  7. VFEND [Concomitant]
     Active Substance: VORICONAZOLE
     Route: 042
     Dates: start: 201106
  8. FUNGIZONE [Concomitant]
     Active Substance: AMPHOTERICIN B
     Indication: Product used for unknown indication
     Route: 065
     Dates: start: 201106
  9. SPORANOX [Concomitant]
     Active Substance: ITRACONAZOLE
     Indication: Antifungal prophylaxis
     Dates: start: 201105
  10. AMBISOME [Concomitant]
     Active Substance: AMPHOTERICIN B
     Dates: start: 201106

REACTIONS (10)
  - Aspergillus infection [Fatal]
  - Hypertensive crisis [Fatal]
  - Altered state of consciousness [Fatal]
  - Hemiplegia [Fatal]
  - Hydrocephalus [Unknown]
  - Epilepsy [Unknown]
  - Mucosal inflammation [Unknown]
  - Paronychia [Unknown]
  - Condition aggravated [Unknown]
  - Pyrexia [Unknown]

NARRATIVE: CASE EVENT DATE: 20110526
